FAERS Safety Report 9096995 (Version 1)
Quarter: 2013Q1

REPORT INFORMATION
  Report Type: Spontaneous
  Country: FR (occurrence: None)
  Receive Date: 20130124
  Receipt Date: 20130124
  Transmission Date: 20140127
  Serious: Yes (Hospitalization)
  Sender: FDA-Public Use
  Company Number: 2013021177

PATIENT
  Age: 69 Year
  Sex: Female

DRUGS (7)
  1. FRAGMINE (DALTEPARIN SODIUM) SOLUTION FOR INJECTION [Suspect]
     Indication: THROMBOSIS IN DEVICE
     Route: 058
     Dates: start: 20120706, end: 20120710
  2. FRAGMINE (DALTEPARIN SODIUM) SOLUTION FOR INJECTION [Suspect]
     Indication: PULMONARY EMBOLISM
     Route: 058
     Dates: start: 20120706, end: 20120710
  3. FRAGMINE (DALTEPARIN SODIUM) SOLUTION FOR INJECTION [Suspect]
     Indication: THROMBOSIS PROPHYLAXIS
     Route: 058
     Dates: start: 20120706, end: 20120710
  4. PREVISCAN [Suspect]
     Indication: THROMBOSIS IN DEVICE
     Route: 048
     Dates: start: 20120706, end: 20120710
  5. PREVISCAN [Suspect]
     Indication: PULMONARY EMBOLISM
     Route: 048
     Dates: start: 20120706, end: 20120710
  6. PREVISCAN [Suspect]
     Indication: THROMBOSIS PROPHYLAXIS
     Route: 048
     Dates: start: 20120706, end: 20120710
  7. METHOTREXATE (METHOTREXATE) [Concomitant]

REACTIONS (7)
  - International normalised ratio increased [None]
  - Thrombosis in device [None]
  - Pulmonary embolism [None]
  - Overdose [None]
  - Prothrombin time prolonged [None]
  - Metastatic gastric cancer [None]
  - Malignant neoplasm progression [None]
